FAERS Safety Report 6500182-1 (Version None)
Quarter: 2009Q4

REPORT INFORMATION
  Report Type: 
  Country: None (occurrence: None)
  Receive Date: 20091216
  Receipt Date: 20091205
  Transmission Date: 20100525
  Serious: Yes (Other)
  Sender: FDA-Public Use
  Company Number: DE-PFIZER INC-2009309807

PATIENT
  Age: 31 Year
  Sex: Female

DRUGS (3)
  1. ATARAX [Suspect]
     Dosage: 45 DF, UNK
     Route: 048
     Dates: start: 20091205
  2. ATOSIL [Suspect]
     Dosage: 200 MG, SINGLE
     Route: 048
     Dates: start: 20091205
  3. METOCLOPRAMIDE HCL [Suspect]
     Dosage: 120 MG, SINGLE
     Dates: start: 20091205

REACTIONS (1)
  - SUICIDE ATTEMPT [None]
